FAERS Safety Report 7367368-8 (Version None)
Quarter: 2011Q1

REPORT INFORMATION
  Report Type: 
  Country: None (occurrence: None)
  Receive Date: 20110322
  Receipt Date: 20110314
  Transmission Date: 20110831
  Serious: Yes (Disabling)
  Sender: FDA-Public Use
  Company Number: FR-BRISTOL-MYERS SQUIBB COMPANY-15611734

PATIENT
  Age: 47 Year
  Sex: Male

DRUGS (3)
  1. CIBACENE [Concomitant]
     Indication: GLOMERULONEPHRITIS
     Dates: start: 20020101
  2. APROVEL [Suspect]
  3. ELISOR TABS 20 MG [Suspect]
     Indication: HYPERCHOLESTEROLAEMIA
     Dosage: 20MG
     Dates: start: 20030101, end: 20060101

REACTIONS (1)
  - POLYMYOSITIS [None]
